FAERS Safety Report 10416098 (Version 1)
Quarter: 2014Q3

REPORT INFORMATION
  Report Type: Other
  Country: US (occurrence: US)
  Receive Date: 20140828
  Receipt Date: 20140828
  Transmission Date: 20150326
  Serious: No
  Sender: FDA-Public Use
  Company Number: US-MYLAN-2014S1004685

PATIENT
  Sex: Female

DRUGS (1)
  1. BUPROPION HYDROCHLORIDE EXTENDED RELEASE (XL) [Suspect]
     Active Substance: BUPROPION HYDROCHLORIDE
     Dosage: UNK

REACTIONS (7)
  - Palpitations [Not Recovered/Not Resolved]
  - Depression [Not Recovered/Not Resolved]
  - Anxiety [Not Recovered/Not Resolved]
  - Agitation [Not Recovered/Not Resolved]
  - Sleep talking [Not Recovered/Not Resolved]
  - Crying [Not Recovered/Not Resolved]
  - Abnormal dreams [Not Recovered/Not Resolved]
